FAERS Safety Report 18062271 (Version 1)
Quarter: 2020Q3

REPORT INFORMATION
  Report Type: Spontaneous
  Country: NL (occurrence: NL)
  Receive Date: 20200724
  Receipt Date: 20200724
  Transmission Date: 20201103
  Serious: Yes (Other)
  Sender: FDA-Public Use
  Company Number: NL-TEVA-2020-NL-1803879

PATIENT
  Age: 37 Year
  Sex: Female
  Weight: 60 kg

DRUGS (5)
  1. DEPAKINE (VALPROINEZUUR) [Concomitant]
     Dosage: 300 MG (MILLIGRAMS),  THERAPY START DATE AND END DATE: ASKU
  2. KEPPRA [Concomitant]
     Active Substance: LEVETIRACETAM
     Dosage: 1000 MG (MILLIGRAMS),  THERAPY START DATE AND END DATE: ASKU
  3. COLECALCIFEROL [Concomitant]
     Active Substance: CHOLECALCIFEROL
     Dosage: 800 UNITS,  THERAPY START DATE AND END DATE: ASKU
  4. METOCLOPRAMIDE. [Concomitant]
     Active Substance: METOCLOPRAMIDE
     Dosage: 10 MG (MILLIGRAM), THERAPY START DATE AND END DATE: ASKU
  5. PANTOPRAZOL [Suspect]
     Active Substance: PANTOPRAZOLE SODIUM
     Indication: DUODENITIS
     Dosage: 1 X PER DAY 1 PIECE, 20 MG
     Route: 065
     Dates: start: 20200629, end: 20200703

REACTIONS (1)
  - Epilepsy [Unknown]

NARRATIVE: CASE EVENT DATE: 20200629
